FAERS Safety Report 16227664 (Version 3)
Quarter: 2019Q2

REPORT INFORMATION
  Report Type: Spontaneous
  Country: US (occurrence: US)
  Receive Date: 20190423
  Receipt Date: 20190607
  Transmission Date: 20190711
  Serious: No
  Sender: FDA-Public Use
  Company Number: US-PFIZER INC-2019166411

PATIENT
  Age: 58 Year
  Sex: Male

DRUGS (3)
  1. SILDENAFIL CITRATE. [Suspect]
     Active Substance: SILDENAFIL CITRATE
     Indication: ERECTILE DYSFUNCTION
     Dosage: 20 MG, AS NEEDED (ONCE DAILY AS NEEDED ONE HOUR PRIOR TO SEXUAL ACTIVITY)
     Route: 048
     Dates: start: 20190411
  2. SILDENAFIL CITRATE. [Suspect]
     Active Substance: SILDENAFIL CITRATE
     Dosage: 40 MG, UNK (TOOK 2 TABLETS)
     Route: 048
  3. LEVOTHYROXINE. [Concomitant]
     Active Substance: LEVOTHYROXINE
     Indication: THYROID DISORDER
     Dosage: 88 UG, 1X/DAY
     Route: 048

REACTIONS (7)
  - Foreign body sensation in eyes [Recovered/Resolved]
  - Drug ineffective for unapproved indication [Not Recovered/Not Resolved]
  - Product prescribing error [Unknown]
  - Eye swelling [Recovered/Resolved]
  - Intentional product misuse [Unknown]
  - Off label use [Not Recovered/Not Resolved]
  - Eye pain [Unknown]

NARRATIVE: CASE EVENT DATE: 20190411
